APPROVED DRUG PRODUCT: DARUNAVIR
Active Ingredient: DARUNAVIR
Strength: 600MG
Dosage Form/Route: TABLET;ORAL
Application: A202083 | Product #002 | TE Code: AB
Applicant: HETERO LABS LTD UNIT III
Approved: Sep 14, 2023 | RLD: No | RS: No | Type: RX